FAERS Safety Report 19890472 (Version 1)
Quarter: 2021Q3

REPORT INFORMATION
  Report Type: Spontaneous
  Country: US (occurrence: US)
  Receive Date: 20210928
  Receipt Date: 20210928
  Transmission Date: 20211014
  Serious: Yes (Other)
  Sender: FDA-Public Use
  Company Number: None

PATIENT
  Sex: Female

DRUGS (1)
  1. REMDESIVIR. [Suspect]
     Active Substance: REMDESIVIR
     Dates: start: 20210926, end: 20210928

REACTIONS (3)
  - Electrocardiogram QT prolonged [None]
  - Respiratory failure [None]
  - Sinus bradycardia [None]

NARRATIVE: CASE EVENT DATE: 20210928
